FAERS Safety Report 8390209-7 (Version None)
Quarter: 2012Q2

REPORT INFORMATION
  Report Type: 
  Country: None (occurrence: None)
  Receive Date: 20120518
  Receipt Date: 20120510
  Transmission Date: 20120825
  Serious: Yes (Other)
  Sender: FDA-Public Use
  Company Number: 2012SP018267

PATIENT
  Age: 59 Year
  Sex: Female

DRUGS (12)
  1. LEVOTHYROXINE SODIUM [Concomitant]
  2. ACETAMINOPHEN AND CODEINE PHOSPHATE [Concomitant]
  3. CITALOPRAM [Concomitant]
  4. TRAMODOL [Concomitant]
  5. LANSOPRAZOLE [Concomitant]
  6. ONDANSETRON [Concomitant]
  7. PEGINTERFERON ALFA-2B [Suspect]
     Indication: PRODUCT USED FOR UNKNOWN INDICATION
  8. THIAMINE [Concomitant]
  9. AMITRIPTYLINE HCL [Concomitant]
  10. BOCEPREVIR (SCH-503034) (800 MG) [Suspect]
     Indication: HEPATITIS C
     Dosage: 800 MG;TID;PO
     Dates: start: 20110819
  11. RIBAVIRIN [Suspect]
  12. DOMPERIDONE [Concomitant]

REACTIONS (3)
  - PSORIASIS [None]
  - CANDIDIASIS [None]
  - ANORECTAL DISORDER [None]
